FAERS Safety Report 13346583 (Version 2)
Quarter: 2017Q1

REPORT INFORMATION
  Report Type: Spontaneous
  Country: FR (occurrence: FR)
  Receive Date: 20170317
  Receipt Date: 20170330
  Transmission Date: 20170428
  Serious: Yes (Hospitalization, Disabling)
  Sender: FDA-Public Use
  Company Number: FR-SA-2017SA040018

PATIENT
  Age: 17 Year
  Sex: Male

DRUGS (4)
  1. ETHAMBUTOL [Suspect]
     Active Substance: ETHAMBUTOL HYDROCHLORIDE
     Indication: PULMONARY TUBERCULOSIS
     Dosage: STRENGTH- 500 MG
     Route: 048
     Dates: start: 20161209, end: 20161214
  2. BECILAN [Concomitant]
     Active Substance: PYRIDOXINE
     Route: 048
     Dates: start: 20161209
  3. VITAMIN B1 [Concomitant]
     Active Substance: THIAMINE HYDROCHLORIDE
     Route: 048
     Dates: start: 20161209, end: 20161215
  4. RIFATER [Suspect]
     Active Substance: ISONIAZID\PYRAZINAMIDE\RIFAMPIN
     Indication: PULMONARY TUBERCULOMA
     Route: 048
     Dates: start: 20161209, end: 20161215

REACTIONS (1)
  - Brief psychotic disorder with marked stressors [Recovered/Resolved]

NARRATIVE: CASE EVENT DATE: 20161211
